FAERS Safety Report 4655079-9 (Version None)
Quarter: 2005Q2

REPORT INFORMATION
  Report Type: 
  Country: None (occurrence: None)
  Receive Date: 20050503
  Receipt Date: 20050425
  Transmission Date: 20051028
  Serious: Yes (Life-Threatening)
  Sender: FDA-Public Use
  Company Number: 2005GB00797

PATIENT
  Age: 89 Year
  Sex: Female

DRUGS (6)
  1. SEROQUEL [Suspect]
     Indication: AGGRESSION
     Dosage: 25 MG BID PO
     Route: 048
     Dates: end: 20050314
  2. SEROQUEL [Suspect]
     Indication: AGITATION
     Dosage: 25 MG BID PO
     Route: 048
     Dates: end: 20050314
  3. COMBIVENT [Concomitant]
  4. FUROSEMIDE [Concomitant]
  5. RAMIPRIL [Concomitant]
  6. BENCLOMETHASONE [Concomitant]

REACTIONS (1)
  - RESPIRATORY ARREST [None]
